FAERS Safety Report 19573281 (Version 1)
Quarter: 2021Q3

REPORT INFORMATION
  Report Type: Spontaneous
  Country: FR (occurrence: FR)
  Receive Date: 20210717
  Receipt Date: 20210717
  Transmission Date: 20211014
  Serious: Yes (Hospitalization, Other)
  Sender: FDA-Public Use
  Company Number: FR-AUROBINDO-AUR-APL-2021-030117

PATIENT
  Age: 74 Year
  Sex: Male

DRUGS (3)
  1. ESBRIET [Concomitant]
     Active Substance: PIRFENIDONE
     Indication: PRODUCT USED FOR UNKNOWN INDICATION
     Dosage: UNK
     Route: 065
  2. TADALAFIL. [Suspect]
     Active Substance: TADALAFIL
     Indication: ERECTILE DYSFUNCTION
     Dosage: 10 MILLIGRAM 1 TOTAL
     Route: 048
     Dates: start: 20210617, end: 20210617
  3. SPEDRA [Suspect]
     Active Substance: AVANAFIL
     Indication: ERECTILE DYSFUNCTION
     Dosage: 100 MILLIGRAM 1 TOTAL
     Route: 048
     Dates: start: 20210617, end: 20210617

REACTIONS (1)
  - Haemorrhagic stroke [Recovering/Resolving]

NARRATIVE: CASE EVENT DATE: 20210618
